FAERS Safety Report 4355512-6 (Version None)
Quarter: 2004Q2

REPORT INFORMATION
  Report Type: 
  Country: None (occurrence: None)
  Receive Date: 20040503
  Receipt Date: 20031124
  Transmission Date: 20050107
  Serious: Yes (Other)
  Sender: FDA-Public Use
  Company Number: PHEH2003US09182

PATIENT
  Age: 54 Year
  Sex: Female
  Weight: 81.3 kg

DRUGS (4)
  1. LOTREL [Suspect]
     Indication: HYPERTENSION
     Dosage: 5 MG AMLOD/20 MG BENAZ
  2. HYDROCHLOROTHIAZIDE [Concomitant]
  3. GLUCOPHAGE [Concomitant]
  4. GLYBURIDE [Concomitant]

REACTIONS (3)
  - BLOOD PRESSURE ABNORMAL [None]
  - FLUSHING [None]
  - HEADACHE [None]
